FAERS Safety Report 6208726-4 (Version None)
Quarter: 2009Q2

REPORT INFORMATION
  Report Type: 
  Country: None (occurrence: None)
  Receive Date: 20090529
  Receipt Date: 20090526
  Transmission Date: 20091009
  Serious: Yes (Hospitalization, Other)
  Sender: FDA-Public Use
  Company Number: DK-ROXANE LABORATORIES, INC.-2009-RO-00528RO

PATIENT
  Age: 66 Year
  Sex: Male

DRUGS (4)
  1. RAMIPRIL [Suspect]
     Indication: ISCHAEMIC CARDIOMYOPATHY
     Dosage: 7.5MG
     Dates: start: 20050301
  2. FUROSEMIDE [Suspect]
     Indication: DIURETIC THERAPY
     Dosage: 120MG
  3. METOLAZONE [Suspect]
     Indication: DIURETIC THERAPY
     Dosage: 2.5MG
  4. SPIRONOLACTONE [Suspect]
     Indication: DIURETIC THERAPY
     Dosage: 12.5MG

REACTIONS (4)
  - AZOTAEMIA [None]
  - BLOOD CREATININE INCREASED [None]
  - DEHYDRATION [None]
  - LABORATORY TEST ABNORMAL [None]
